FAERS Safety Report 5507759-0 (Version None)
Quarter: 2007Q4

REPORT INFORMATION
  Report Type: 
  Country: None (occurrence: None)
  Receive Date: 20071106
  Receipt Date: 20071023
  Transmission Date: 20080405
  Serious: Yes (Other)
  Sender: FDA-Public Use
  Company Number: GB-AMGEN-US250700

PATIENT
  Age: 54 Year
  Sex: Male

DRUGS (6)
  1. ENBREL [Suspect]
     Indication: PSORIASIS
     Route: 058
     Dates: start: 20041101, end: 20050101
  2. ENBREL [Suspect]
     Indication: PSORIATIC ARTHROPATHY
  3. INFLIXIMAB [Suspect]
     Indication: PSORIASIS
     Dosage: 3 MG/KG INTERMITTENT INFUSION
     Route: 042
     Dates: start: 20030701, end: 20041101
  4. INFLIXIMAB [Suspect]
     Indication: PSORIATIC ARTHROPATHY
  5. METHOTREXATE [Concomitant]
     Dosage: UNKNOWN
     Dates: start: 19950101
  6. METHOTREXATE [Concomitant]
     Dates: start: 20050101

REACTIONS (3)
  - BASAL CELL CARCINOMA [None]
  - DRUG INEFFECTIVE [None]
  - SQUAMOUS CELL CARCINOMA [None]
